FAERS Safety Report 9235875 (Version 1)
Quarter: 2013Q2

REPORT INFORMATION
  Report Type: Spontaneous
  Country: CA (occurrence: None)
  Receive Date: 20130403
  Receipt Date: 20130403
  Transmission Date: 20140414
  Serious: Yes (Other)
  Sender: FDA-Public Use
  Company Number: 2013035129

PATIENT
  Age: 84 Year
  Sex: Male

DRUGS (4)
  1. PRIVIGEN (IMMUNE GLOBULIN INTRAVENOUS (HUMAN) 10% LIQUID) [Suspect]
     Indication: GUILLAIN-BARRE SYNDROME
     Route: 042
     Dates: start: 20130305, end: 20130305
  2. PRIVIGEN (IMMUNE GLOBULIN INTRAVENOUS (HUMAN) 10% LIQUID) [Suspect]
     Indication: MILLER FISHER SYNDROME
     Route: 042
     Dates: start: 20130305, end: 20130305
  3. PRIVIGEN (IMMUNE GLOBULIN INTRAVENOUS (HUMAN) 10% LIQUID) [Suspect]
     Route: 042
     Dates: start: 20130305, end: 20130305
  4. ATIVAN (LORAZEPAM) [Suspect]
     Indication: UNEVALUABLE EVENT

REACTIONS (4)
  - Haemolytic anaemia [None]
  - Off label use [None]
  - Platelet count increased [None]
  - Fatigue [None]
